FAERS Safety Report 9832123 (Version 1)
Quarter: 2014Q1

REPORT INFORMATION
  Report Type: Spontaneous
  Country: CA (occurrence: CA)
  Receive Date: 20140121
  Receipt Date: 20140121
  Transmission Date: 20141002
  Serious: Yes (Other)
  Sender: FDA-Public Use
  Company Number: CA-MYLANLABS-2014S1000704

PATIENT
  Age: 83 Year
  Sex: Female

DRUGS (16)
  1. METOPROLOL [Suspect]
     Indication: CORONARY ARTERY DISEASE
     Dosage: HALF A 50MG TABLET TWICE DAILY
     Route: 065
  2. AMLODIPINE [Suspect]
     Indication: HYPERTENSION
     Dosage: HALF A 5MG TABLET TWICE DAILY
     Route: 065
  3. FUROSEMIDE [Suspect]
     Dosage: EVERY MORNING
     Route: 065
  4. NITROGLYCERIN [Suspect]
     Indication: ANGINA PECTORIS
     Dosage: TWO 0.4MG PATCHES ON AT 9AM AND OFF AT 10PM
     Route: 062
  5. NITROGLYCERIN [Suspect]
     Indication: ANGINA PECTORIS
     Dosage: TWO 0.4MG SPRAYS AS NEEDED
     Route: 065
  6. POLYETHYLENE GLYCOL [Suspect]
  7. RAMIPRIL [Concomitant]
     Indication: HYPERTENSION
     Dosage: EVERY MORNING
     Route: 065
  8. CLOPIDOGREL [Concomitant]
     Indication: CORONARY ARTERY DISEASE
     Dosage: EVERY MORNING
     Route: 065
  9. ATORVASTATIN [Concomitant]
     Indication: CORONARY ARTERY DISEASE
     Dosage: AT BEDTIME
     Route: 065
  10. ESCITALOPRAM [Concomitant]
     Indication: DEPRESSION
     Dosage: EVERY MORNING
     Route: 065
  11. ZOPICLONE [Concomitant]
     Indication: INSOMNIA
     Dosage: AT BEDTIME
     Route: 065
  12. OXAZEPAM [Concomitant]
     Indication: ANXIETY
     Dosage: TWO 10MG TABLETS AT BEDTIME
     Route: 065
  13. VITAMIN D [Concomitant]
     Indication: OSTEOPOROSIS
     Dosage: 1000 IU DAILY
     Route: 065
  14. PARACETAMOL/CODEINE [Concomitant]
     Indication: PAIN
     Dosage: AS NEEDED
     Route: 065
  15. PARACETAMOL [Concomitant]
     Indication: PAIN
     Route: 065
  16. PANTOPRAZOLE [Concomitant]
     Indication: NAUSEA
     Dosage: EVERY MORNING
     Route: 065

REACTIONS (6)
  - Hypotension [Recovering/Resolving]
  - Dizziness [Recovered/Resolved]
  - Fall [Recovered/Resolved]
  - Bradycardia [Unknown]
  - Oedema peripheral [Unknown]
  - Hypokalaemia [Unknown]
